FAERS Safety Report 4661801-8 (Version None)
Quarter: 2005Q2

REPORT INFORMATION
  Report Type: 
  Country: None (occurrence: None)
  Receive Date: 20050513
  Receipt Date: 20050504
  Transmission Date: 20051028
  Serious: Yes (Hospitalization)
  Sender: FDA-Public Use
  Company Number: 2005UW06888

PATIENT
  Age: 76 Year
  Sex: Female
  Weight: 48.5 kg

DRUGS (6)
  1. ARIMIDEX [Suspect]
     Indication: BREAST CANCER
     Route: 048
     Dates: start: 20041101
  2. GAVISCON [Concomitant]
  3. SYNTHROID [Concomitant]
  4. ACTOS [Concomitant]
  5. POTASSIUM CHLORIDE [Concomitant]
  6. TYLENOL (CAPLET) [Concomitant]

REACTIONS (5)
  - APPENDIX DISORDER [None]
  - GANGRENE [None]
  - HEADACHE [None]
  - HOT FLUSH [None]
  - MOOD ALTERED [None]
